FAERS Safety Report 8010602-1 (Version None)
Quarter: 2011Q4

REPORT INFORMATION
  Report Type: 
  Country: None (occurrence: None)
  Receive Date: 20111228
  Receipt Date: 20111216
  Transmission Date: 20120403
  Serious: Yes (Other)
  Sender: FDA-Public Use
  Company Number: PHHY2011PL111440

PATIENT
  Age: 43 Year
  Sex: Female

DRUGS (6)
  1. TACROLIMUS [Concomitant]
     Dosage: 4.5 MG, BID
  2. TACROLIMUS [Concomitant]
     Dosage: 8-12 NG/ML
  3. MYCOPHENOLATE MOFETIL [Concomitant]
     Dosage: 1 G, BID
     Dates: end: 20110713
  4. MYCOPHENOLATE MOFETIL [Concomitant]
     Dosage: 4 X 500 MG
  5. PREDNISONE [Concomitant]
     Dosage: 7.5 MG, UNK
  6. BASILIXIMAB [Suspect]
     Indication: RENAL AND PANCREAS TRANSPLANT
     Dosage: 20 MG, BID

REACTIONS (5)
  - KIDNEY TRANSPLANT REJECTION [None]
  - GASTROINTESTINAL STOMA COMPLICATION [None]
  - URINARY TRACT INFECTION [None]
  - DIARRHOEA [None]
  - COMPLICATIONS OF TRANSPLANTED KIDNEY [None]
